FAERS Safety Report 6840110-2 (Version None)
Quarter: 2010Q3

REPORT INFORMATION
  Report Type: 
  Country: None (occurrence: None)
  Receive Date: 20100713
  Receipt Date: 20100713
  Transmission Date: 20110219
  Serious: Yes (Other)
  Sender: FDA-Public Use
  Company Number: None

PATIENT
  Sex: Male
  Weight: 116.1208 kg

DRUGS (2)
  1. LANSOPRAZOLE [Suspect]
     Indication: GASTRITIS
     Dosage: 30 MG BID BY MOUTH (ORAL)
     Route: 048
     Dates: start: 20100101, end: 20100501
  2. LANSOPRAZOLE [Suspect]
     Indication: GASTROOESOPHAGEAL REFLUX DISEASE
     Dosage: 30 MG BID BY MOUTH (ORAL)
     Route: 048
     Dates: start: 20100101, end: 20100501

REACTIONS (2)
  - DRUG INEFFECTIVE [None]
  - PRODUCT SUBSTITUTION ISSUE [None]
